FAERS Safety Report 7531018-8 (Version None)
Quarter: 2011Q2

REPORT INFORMATION
  Report Type: 
  Country: None (occurrence: None)
  Receive Date: 20110608
  Receipt Date: 20110527
  Transmission Date: 20111010
  Serious: Yes (Other)
  Sender: FDA-Public Use
  Company Number: AU-JNJFOC-20101204757

PATIENT
  Sex: Male
  Weight: 103 kg

DRUGS (3)
  1. STELARA [Suspect]
     Indication: PSORIASIS
     Route: 058
     Dates: start: 20100723
  2. STELARA [Suspect]
     Route: 058
     Dates: start: 20100625
  3. STELARA [Suspect]
     Route: 058
     Dates: start: 20100901

REACTIONS (6)
  - DEPRESSION [None]
  - LATENT TUBERCULOSIS [None]
  - GASTROENTERITIS VIRAL [None]
  - NERVOUSNESS [None]
  - RHINORRHOEA [None]
  - PSORIATIC ARTHROPATHY [None]
